FAERS Safety Report 17888873 (Version 1)
Quarter: 2020Q2

REPORT INFORMATION
  Report Type: Spontaneous
  Country: IN (occurrence: IN)
  Receive Date: 20200612
  Receipt Date: 20200612
  Transmission Date: 20200714
  Serious: Yes (Other)
  Sender: FDA-Public Use
  Company Number: IN-MYLANLABS-2020M1056601

PATIENT
  Sex: Female

DRUGS (1)
  1. HERTRAZ 440 [Suspect]
     Active Substance: TRASTUZUMAB
     Indication: BREAST CANCER METASTATIC
     Dosage: 440 MILLIGRAM, Q3W
     Route: 042
     Dates: start: 20181129, end: 201910

REACTIONS (1)
  - Drug ineffective [Unknown]
